FAERS Safety Report 6511225-3 (Version None)
Quarter: 2009Q4

REPORT INFORMATION
  Report Type: 
  Country: None (occurrence: None)
  Receive Date: 20091222
  Receipt Date: 20090302
  Transmission Date: 20100525
  Serious: No
  Sender: FDA-Public Use
  Company Number: US-ASTRAZENECA-2009UW05605

PATIENT
  Age: 80 Year
  Sex: Male
  Weight: 75.3 kg

DRUGS (5)
  1. CRESTOR [Suspect]
     Indication: BLOOD CHOLESTEROL INCREASED
     Route: 048
     Dates: start: 20090228
  2. PROSCAR [Concomitant]
  3. NABUMETONE [Concomitant]
  4. NEURONTIN [Concomitant]
  5. DIOVAN [Concomitant]

REACTIONS (4)
  - DIZZINESS [None]
  - EYE DISORDER [None]
  - HEADACHE [None]
  - INFLUENZA LIKE ILLNESS [None]
